FAERS Safety Report 9454081 (Version 1)
Quarter: 2013Q3

REPORT INFORMATION
  Report Type: Spontaneous
  Country: EC (occurrence: EC)
  Receive Date: 20130812
  Receipt Date: 20130812
  Transmission Date: 20140515
  Serious: Yes (Life-Threatening)
  Sender: FDA-Public Use
  Company Number: EC-ROCHE-1260409

PATIENT
  Sex: Male

DRUGS (1)
  1. ORLISTAT [Suspect]
     Indication: OVERWEIGHT
     Route: 065

REACTIONS (1)
  - Renal cancer [Recovered/Resolved]
